FAERS Safety Report 8778126 (Version 1)
Quarter: 2012Q4

REPORT INFORMATION
  Report Type: 
  Country: US (occurrence: US)
  Receive Date: 20120911
  Receipt Date: 20120911
  Transmission Date: 20130627
  Serious: Yes (Life-Threatening)
  Sender: FDA-Public Use
  Company Number: US-009507513-1209USA003541

PATIENT

DRUGS (2)
  1. CLARINEX [Suspect]
     Indication: NASAL DISCOMFORT
     Dosage: 5 mg, bid
     Route: 048
     Dates: start: 201111
  2. [THERAPY UNSPECIFIED] [Concomitant]

REACTIONS (5)
  - Oesophageal oedema [Not Recovered/Not Resolved]
  - Oesophageal dilatation [Not Recovered/Not Resolved]
  - Medication error [Unknown]
  - Oropharyngeal pain [Not Recovered/Not Resolved]
  - Dysphagia [Not Recovered/Not Resolved]
